FAERS Safety Report 6618575-0 (Version None)
Quarter: 2010Q1

REPORT INFORMATION
  Report Type: 
  Country: None (occurrence: None)
  Receive Date: 20100302
  Receipt Date: 20100217
  Transmission Date: 20100710
  Serious: Yes (Other)
  Sender: FDA-Public Use
  Company Number: 2010-0576

PATIENT
  Age: 43 Year
  Sex: Female
  Weight: 90 kg

DRUGS (2)
  1. DYSPORT [Suspect]
     Indication: MUSCLE SPASTICITY
     Dosage: 500 UNITS (500 UNITS, SINGLE CYCLE), PARENTERAL
     Route: 051
     Dates: start: 20091216, end: 20091216
  2. BOTULINUM TOXIN TYPE A [Suspect]

REACTIONS (2)
  - DYSURIA [None]
  - MUSCULAR WEAKNESS [None]
